FAERS Safety Report 5694240-1 (Version None)
Quarter: 2008Q2

REPORT INFORMATION
  Report Type: 
  Country: None (occurrence: None)
  Receive Date: 20080403
  Receipt Date: 20080403
  Transmission Date: 20081010
  Serious: Yes (Life-Threatening, Hospitalization, Disabling, Other)
  Sender: FDA-Public Use
  Company Number: None

PATIENT
  Age: 19 Year
  Sex: Female
  Weight: 35 kg

DRUGS (1)
  1. ANTI-THYMOCYTE GLOBULIN NOS [Suspect]
     Indication: HEART TRANSPLANT
     Dosage: 52.5MG Q24H IV
     Route: 042
     Dates: start: 20080401, end: 20080402

REACTIONS (4)
  - HYPOTENSION [None]
  - INFUSION RELATED REACTION [None]
  - PARALYSIS [None]
  - PYREXIA [None]
